FAERS Safety Report 14288336 (Version 1)
Quarter: 2017Q4

REPORT INFORMATION
  Report Type: Spontaneous
  Country: US (occurrence: US)
  Receive Date: 20171214
  Receipt Date: 20171214
  Transmission Date: 20180321
  Serious: Yes (Other)
  Sender: FDA-Public Use
  Company Number: US-STANDARD HOMEOPATHIC COMPANY-2037201

PATIENT
  Age: 48 Year
  Sex: Female

DRUGS (1)
  1. CALMS FORTE 4 KIDS [Suspect]
     Active Substance: HOMEOPATHICS
     Indication: PRODUCT USED FOR UNKNOWN INDICATION
     Route: 048
     Dates: start: 2010, end: 20170601

REACTIONS (3)
  - Serotonin syndrome [None]
  - Seizure [None]
  - Vomiting [None]

NARRATIVE: CASE EVENT DATE: 20170601
